FAERS Safety Report 10415543 (Version 1)
Quarter: 2014Q2

REPORT INFORMATION
  Report Type: Spontaneous
  Country: US (occurrence: None)
  Receive Date: 20140604
  Receipt Date: 20140604
  Transmission Date: 20141212
  Serious: No
  Sender: FDA-Public Use
  Company Number: 163-POMAL-14021418

PATIENT
  Age: 82 Year
  Sex: Male

DRUGS (4)
  1. POMALYST (POMALIDOMIDE) (CAPSULES) [Suspect]
     Indication: PLASMA CELL MYELOMA
     Route: 048
     Dates: start: 20131119
  2. DOXAZOSIN MESYLATE (DOXAZOSIN MESILATE) [Concomitant]
  3. GLUCOSAMIN 1500 COMPLEX [Concomitant]
  4. GALANTAMINE HYDROBROMIDE [Concomitant]

REACTIONS (1)
  - Herpes zoster [None]
